FAERS Safety Report 21737876 (Version 1)
Quarter: 2022Q4

REPORT INFORMATION
  Report Type: Spontaneous
  Country: US (occurrence: None)
  Receive Date: 20221216
  Receipt Date: 20221216
  Transmission Date: 20230113
  Serious: Yes (Life-Threatening, Hospitalization, Other)
  Sender: FDA-Public Use
  Company Number: US-MLMSERVICE-20221206-3964641-1

PATIENT
  Age: 54 Year
  Sex: Male

DRUGS (2)
  1. METHOTREXATE [Interacting]
     Active Substance: METHOTREXATE
     Indication: Systemic scleroderma
     Route: 065
  2. UNSPECIFIED INGREDIENT [Interacting]
     Active Substance: UNSPECIFIED INGREDIENT
     Indication: Pain
     Route: 065

REACTIONS (10)
  - Drug interaction [Unknown]
  - Cardiomyopathy acute [Recovering/Resolving]
  - Myocardial necrosis [Recovering/Resolving]
  - Cardiac failure acute [Recovering/Resolving]
  - Renal impairment [Recovering/Resolving]
  - Hepatic function abnormal [Recovering/Resolving]
  - Cardiotoxicity [Recovering/Resolving]
  - Toxicity to various agents [Recovering/Resolving]
  - Product use in unapproved indication [Unknown]
  - Product prescribing issue [Unknown]
